FAERS Safety Report 5083072-3 (Version None)
Quarter: 2006Q3

REPORT INFORMATION
  Report Type: 
  Country: None (occurrence: None)
  Receive Date: 20060814
  Receipt Date: 20060728
  Transmission Date: 20061208
  Serious: Yes (Other)
  Sender: FDA-Public Use
  Company Number: 2006097063

PATIENT
  Age: 36 Year
  Sex: Male

DRUGS (5)
  1. LYRICA [Suspect]
     Indication: EPILEPSY
     Dosage: 75 MG (75 MG,1 IN 1 D)
     Dates: start: 20060727
  2. LEVETIRACETAM [Concomitant]
  3. LAMOTRIGINE [Concomitant]
  4. HYDROXYZINE [Concomitant]
  5. OLANZAPINE [Concomitant]

REACTIONS (7)
  - DIPLOPIA [None]
  - DYSPHEMIA [None]
  - FEELING HOT [None]
  - SALIVARY HYPERSECRETION [None]
  - TREMOR [None]
  - VERTIGO [None]
  - VISION BLURRED [None]
